FAERS Safety Report 8599453-7 (Version None)
Quarter: 2012Q3

REPORT INFORMATION
  Report Type: 
  Country: None (occurrence: None)
  Receive Date: 20120816
  Receipt Date: 20120810
  Transmission Date: 20120928
  Serious: Yes (Other)
  Sender: FDA-Public Use
  Company Number: US-BAYER-2012-068838

PATIENT
  Sex: Male

DRUGS (1)
  1. KOGENATE FS [Suspect]

REACTIONS (1)
  - ANTI FACTOR VIII ANTIBODY POSITIVE [None]
